FAERS Safety Report 4364547-9 (Version None)
Quarter: 2004Q2

REPORT INFORMATION
  Report Type: 
  Country: None (occurrence: None)
  Receive Date: 20040521
  Receipt Date: 20040513
  Transmission Date: 20050107
  Serious: Yes (Hospitalization)
  Sender: FDA-Public Use
  Company Number: TCI2004A00693

PATIENT
  Age: 83 Year
  Sex: Female

DRUGS (7)
  1. ACTOS [Suspect]
     Indication: DIABETES MELLITUS
     Dosage: 15 MG (15 MG, 1 D) PER ORAL
     Route: 048
     Dates: start: 20010912, end: 20011201
  2. ACTOS [Suspect]
     Indication: DIABETES MELLITUS
     Dosage: 15 MG (15 MG, 1 D) PER ORAL
     Route: 048
     Dates: start: 20030701, end: 20040220
  3. BLOPRESS (CANDESARTAN CILEXETIL) [Concomitant]
  4. DIGOXIN [Concomitant]
  5. ALLOPURINOL [Concomitant]
  6. NITRAZEPAM [Concomitant]
  7. WARFARIN SODIUM [Concomitant]

REACTIONS (3)
  - GENERALISED OEDEMA [None]
  - PLEURAL EFFUSION [None]
  - WEIGHT INCREASED [None]
